FAERS Safety Report 7110147-7 (Version None)
Quarter: 2010Q4

REPORT INFORMATION
  Report Type: 
  Country: None (occurrence: None)
  Receive Date: 20101116
  Receipt Date: 20101116
  Transmission Date: 20110411
  Serious: Yes (Other)
  Sender: FDA-Public Use
  Company Number: None

PATIENT
  Sex: Female
  Weight: 69.4003 kg

DRUGS (1)
  1. ACTONEL [Suspect]
     Indication: OSTEOPOROSIS
     Dosage: 1 150 MG PILL ONCE A MONTH PO
     Route: 048
     Dates: start: 20101101, end: 20101101

REACTIONS (2)
  - ARTHRALGIA [None]
  - MYALGIA [None]
